FAERS Safety Report 12061117 (Version 1)
Quarter: 2016Q1

REPORT INFORMATION
  Report Type: Spontaneous
  Country: US (occurrence: US)
  Receive Date: 20160210
  Receipt Date: 20160210
  Transmission Date: 20160526
  Serious: No
  Sender: FDA-Public Use
  Company Number: US-EISAI MEDICAL RESEARCH-EC-2016-014186

PATIENT

DRUGS (1)
  1. BANZEL [Suspect]
     Active Substance: RUFINAMIDE
     Dosage: UNKNOWN
     Route: 048

REACTIONS (1)
  - Hepatic enzyme increased [Unknown]
